FAERS Safety Report 13133482 (Version 1)
Quarter: 2017Q1

REPORT INFORMATION
  Report Type: Spontaneous
  Country: US (occurrence: US)
  Receive Date: 20170107
  Receipt Date: 20170107
  Transmission Date: 20170428
  Serious: No
  Sender: FDA-Public Use
  Company Number: None

PATIENT
  Age: 35 Year
  Sex: Female

DRUGS (12)
  1. AMPYRA [Suspect]
     Active Substance: DALFAMPRIDINE
     Indication: MULTIPLE SCLEROSIS
     Route: 048
     Dates: start: 20160204
  2. NORCO [Concomitant]
     Active Substance: ACETAMINOPHEN\HYDROCODONE BITARTRATE
  3. POLYETHYLENE GLYCOL [Concomitant]
     Active Substance: POLYETHYLENE GLYCOLS
  4. SENNOSIDES. [Concomitant]
     Active Substance: SENNOSIDES
  5. PREDNISONE. [Concomitant]
     Active Substance: PREDNISONE
  6. TIZANIDINE. [Concomitant]
     Active Substance: TIZANIDINE
  7. MVI-MINERALS [Concomitant]
  8. GATIRAMER [Concomitant]
  9. TRAZODONE [Concomitant]
     Active Substance: TRAZODONE HYDROCHLORIDE
  10. MORPHINE [Concomitant]
     Active Substance: MORPHINE
  11. GABAPENTIN. [Concomitant]
     Active Substance: GABAPENTIN
  12. DROSPIRENONE-ETHINYL ESTRADIOL [Concomitant]
     Active Substance: DROSPIRENONE\ETHINYL ESTRADIOL

REACTIONS (3)
  - Laboratory test abnormal [None]
  - T-lymphocyte count decreased [None]
  - CD4 lymphocytes decreased [None]

NARRATIVE: CASE EVENT DATE: 20161222
